FAERS Safety Report 5741828-5 (Version None)
Quarter: 2008Q2

REPORT INFORMATION
  Report Type: 
  Country: None (occurrence: None)
  Receive Date: 20080519
  Receipt Date: 20080507
  Transmission Date: 20081010
  Serious: Yes (Hospitalization)
  Sender: FDA-Public Use
  Company Number: FR-JNJFOC-20080403816

PATIENT
  Sex: Female

DRUGS (12)
  1. MOTILIUM [Suspect]
     Indication: DRUG USE FOR UNKNOWN INDICATION
     Route: 048
  2. ULTRACET [Suspect]
     Indication: DRUG USE FOR UNKNOWN INDICATION
     Route: 048
  3. CARDIOCALM [Suspect]
     Indication: DRUG USE FOR UNKNOWN INDICATION
     Route: 048
     Dates: start: 20060615, end: 20080326
  4. ALDALIX [Suspect]
     Indication: DRUG USE FOR UNKNOWN INDICATION
     Route: 048
  5. LASIX [Suspect]
     Indication: DRUG USE FOR UNKNOWN INDICATION
     Route: 048
     Dates: start: 20060616, end: 20080326
  6. SMECTA [Suspect]
     Indication: DRUG USE FOR UNKNOWN INDICATION
     Route: 048
     Dates: start: 20060615, end: 20080326
  7. VIBTIL [Suspect]
     Indication: DRUG USE FOR UNKNOWN INDICATION
     Route: 048
     Dates: start: 20070625, end: 20080326
  8. ACETAMINOPHEN [Suspect]
     Indication: DRUG USE FOR UNKNOWN INDICATION
     Route: 048
     Dates: start: 20060615, end: 20080326
  9. AUGMENTIN '125' [Suspect]
     Indication: UPPER AERODIGESTIVE TRACT INFECTION
     Route: 048
     Dates: start: 20080321, end: 20080328
  10. BRONCHOKOD [Suspect]
     Indication: UPPER AERODIGESTIVE TRACT INFECTION
     Route: 048
     Dates: start: 20080321, end: 20080328
  11. KETOPROFEN [Concomitant]
     Route: 061
  12. DULCIPHAK [Concomitant]
     Route: 061

REACTIONS (2)
  - HYPERKALAEMIA [None]
  - HYPOGLYCAEMIA [None]
